FAERS Safety Report 18222718 (Version 1)
Quarter: 2020Q3

REPORT INFORMATION
  Report Type: Spontaneous
  Country: US (occurrence: US)
  Receive Date: 20200902
  Receipt Date: 20200902
  Transmission Date: 20201103
  Serious: Yes (Other)
  Sender: FDA-Public Use
  Company Number: US-MYLANLABS-2020M1075421

PATIENT
  Sex: Male

DRUGS (2)
  1. RYZOLT [Suspect]
     Active Substance: TRAMADOL HYDROCHLORIDE
     Indication: PAIN
     Dosage: 800 MILLIGRAM, QD
  2. TRAMADOL. [Suspect]
     Active Substance: TRAMADOL
     Indication: PAIN
     Dosage: UNK

REACTIONS (11)
  - Musculoskeletal disorder [Unknown]
  - Drug withdrawal syndrome [Unknown]
  - Incorrect product administration duration [Unknown]
  - Nervous system disorder [Unknown]
  - Dependence [Unknown]
  - Respiratory disorder [Unknown]
  - Drug tolerance increased [Unknown]
  - Drug ineffective [Unknown]
  - Deprescribing error [Unknown]
  - Gastrointestinal disorder [Unknown]
  - Impaired work ability [Unknown]
